FAERS Safety Report 12784189 (Version 1)
Quarter: 2016Q3

REPORT INFORMATION
  Report Type: Spontaneous
  Country: US (occurrence: US)
  Receive Date: 20160927
  Receipt Date: 20160927
  Transmission Date: 20161109
  Serious: No
  Sender: FDA-Public Use
  Company Number: US-PFIZER INC-2016447504

PATIENT
  Age: 73 Year

DRUGS (6)
  1. GRAMICIDIN D [Suspect]
     Active Substance: GRAMICIDIN
  2. NEOMYCIN SULFATE. [Suspect]
     Active Substance: NEOMYCIN SULFATE
  3. POLYMYXIN B. [Suspect]
     Active Substance: POLYMYXIN B
  4. BACITRACIN. [Suspect]
     Active Substance: BACITRACIN
  5. POLYMYXIN B SULFATE. [Suspect]
     Active Substance: POLYMYXIN B SULFATE
  6. BACITRACIN ZINC. [Suspect]
     Active Substance: BACITRACIN ZINC

REACTIONS (1)
  - Drug hypersensitivity [Unknown]
